FAERS Safety Report 4390228-1 (Version None)
Quarter: 2004Q2

REPORT INFORMATION
  Report Type: 
  Country: None (occurrence: None)
  Receive Date: 20040630
  Receipt Date: 20040617
  Transmission Date: 20050107
  Serious: Yes (Hospitalization)
  Sender: FDA-Public Use
  Company Number: FR-JNJFOC-20040604365

PATIENT
  Age: 45 Year
  Sex: Female

DRUGS (6)
  1. IXPRIM (TRAMADOL HYDROCHLORIDE) UNSPECIFIED [Suspect]
     Dosage: ORAL
     Route: 048
     Dates: start: 20040413, end: 20040417
  2. LAMALINE (LAMALINE) [Suspect]
     Dates: start: 20040101, end: 20040417
  3. MYOLASTAN (TETRAZEPAM) [Suspect]
     Dosage: ORAL
     Route: 048
     Dates: start: 20040101, end: 20040417
  4. RENUTRYL (RENUTRYL 500) [Suspect]
     Dates: start: 20040417
  5. PIROXICAM [Suspect]
     Dates: start: 20040101, end: 20040117
  6. EUPANTOL (PANTOPRAZOLE) [Suspect]
     Dates: start: 20040413, end: 20040417

REACTIONS (16)
  - AGRANULOCYTOSIS [None]
  - ANOREXIA [None]
  - ASTHENIA [None]
  - BICYTOPENIA [None]
  - BONE PAIN [None]
  - CONSTIPATION [None]
  - DRUG INTERACTION [None]
  - DYSPHAGIA [None]
  - GENERAL PHYSICAL HEALTH DETERIORATION [None]
  - HAEMOGLOBIN DECREASED [None]
  - HYPERHIDROSIS [None]
  - MUCOSAL ULCERATION [None]
  - NECK PAIN [None]
  - PHARYNGOLARYNGEAL PAIN [None]
  - PYREXIA [None]
  - WHITE BLOOD CELL COUNT DECREASED [None]
